FAERS Safety Report 8395698-X (Version None)
Quarter: 2012Q2

REPORT INFORMATION
  Report Type: 
  Country: None (occurrence: None)
  Receive Date: 20120530
  Receipt Date: 20120315
  Transmission Date: 20120825
  Serious: No
  Sender: FDA-Public Use
  Company Number: US-GLAXOSMITHKLINE-A0969896A

PATIENT
  Age: 74 Year
  Sex: Female

DRUGS (4)
  1. PROVENTIL [Concomitant]
  2. ANTIBIOTICS [Concomitant]
  3. VENTOLIN [Suspect]
     Indication: ASTHMA
     Dosage: 2PUFF AS REQUIRED
     Route: 055
     Dates: start: 20070101
  4. PREDNISONE TAB [Concomitant]

REACTIONS (8)
  - OROPHARYNGEAL DISCOMFORT [None]
  - THROAT IRRITATION [None]
  - BRONCHITIS [None]
  - SPEECH DISORDER [None]
  - COUGH [None]
  - INCREASED UPPER AIRWAY SECRETION [None]
  - DRY THROAT [None]
  - TREATMENT NONCOMPLIANCE [None]
